FAERS Safety Report 6817489-0 (Version None)
Quarter: 2010Q3

REPORT INFORMATION
  Report Type: 
  Country: None (occurrence: None)
  Receive Date: 20100706
  Receipt Date: 20100625
  Transmission Date: 20110219
  Serious: Yes (Other)
  Sender: FDA-Public Use
  Company Number: B0645799A

PATIENT
  Sex: Female
  Weight: 53 kg

DRUGS (7)
  1. HEPATITIS A VACCINE [Suspect]
     Indication: PROPHYLAXIS
     Route: 065
     Dates: start: 20100113, end: 20100113
  2. TETANUS VACCINE [Suspect]
     Indication: PROPHYLAXIS
     Route: 065
     Dates: start: 20100113, end: 20100113
  3. PANDEMIC VACCINE H1N1 UNSPECIFIED [Suspect]
     Indication: PROPHYLAXIS
     Dosage: 1INJ SINGLE DOSE
     Route: 065
     Dates: start: 20100129, end: 20100129
  4. TYPHOID VACCINE [Suspect]
     Indication: PROPHYLAXIS
     Route: 030
     Dates: start: 20100113, end: 20100113
  5. TETANUS + DIPHTHERIA VACCINE [Suspect]
     Indication: PROPHYLAXIS
     Route: 030
     Dates: start: 20100113, end: 20100113
  6. MALARONE [Suspect]
     Indication: MALARIA PROPHYLAXIS
     Dosage: 1TAB PER DAY
     Route: 048
     Dates: start: 20100217, end: 20100314
  7. NICOTINE PATCHES [Concomitant]
     Route: 065

REACTIONS (4)
  - ANAEMIA [None]
  - DRUG EXPOSURE BEFORE PREGNANCY [None]
  - DRUG EXPOSURE DURING PREGNANCY [None]
  - RASH [None]
